FAERS Safety Report 24701403 (Version 1)
Quarter: 2024Q4

REPORT INFORMATION
  Report Type: Report from Study
  Country: US (occurrence: US)
  Receive Date: 20241205
  Receipt Date: 20241205
  Transmission Date: 20250115
  Serious: Yes (Hospitalization)
  Sender: JOHNSON AND JOHNSON
  Company Number: US-JNJFOC-20241149920

PATIENT
  Age: 57 Year
  Sex: Female

DRUGS (1)
  1. TREMFYA [Suspect]
     Active Substance: GUSELKUMAB
     Indication: Product used for unknown indication
     Dates: start: 20240513

REACTIONS (2)
  - Pneumonia [Unknown]
  - Bronchitis [Unknown]

NARRATIVE: CASE EVENT DATE: 20240101
